FAERS Safety Report 8336882-0 (Version None)
Quarter: 2012Q2

REPORT INFORMATION
  Report Type: 
  Country: None (occurrence: None)
  Receive Date: 20120504
  Receipt Date: 20120503
  Transmission Date: 20120825
  Serious: Yes (Other)
  Sender: FDA-Public Use
  Company Number: US-PFIZER INC-2012109074

PATIENT
  Sex: Female
  Weight: 56.689 kg

DRUGS (3)
  1. PRISTIQ [Suspect]
     Indication: ANXIETY
  2. CRESTOR [Concomitant]
     Dosage: UNK
  3. PRISTIQ [Suspect]
     Indication: DEPRESSION
     Dosage: UNK

REACTIONS (2)
  - DISEASE RECURRENCE [None]
  - HEPATIC NEOPLASM [None]
